FAERS Safety Report 24925100 (Version 1)
Quarter: 2025Q1

REPORT INFORMATION
  Report Type: Spontaneous
  Country: JP (occurrence: JP)
  Receive Date: 20250204
  Receipt Date: 20250204
  Transmission Date: 20250408
  Serious: Yes (Other)
  Sender: BRISTOL-MYERS SQUIBB COMPANY
  Company Number: JP-BRISTOL-MYERS SQUIBB COMPANY-2025-016185

PATIENT
  Sex: Female

DRUGS (1)
  1. AUGTYRO [Suspect]
     Active Substance: REPOTRECTINIB
     Indication: Non-small cell lung cancer
     Dosage: DOSE : 4 CAPSULES
     Route: 048
     Dates: start: 20250120

REACTIONS (4)
  - Dizziness [Not Recovered/Not Resolved]
  - Taste disorder [Not Recovered/Not Resolved]
  - Cytopenia [Not Recovered/Not Resolved]
  - Aspartate aminotransferase increased [Not Recovered/Not Resolved]

NARRATIVE: CASE EVENT DATE: 20250127
